FAERS Safety Report 13946918 (Version 1)
Quarter: 2017Q3

REPORT INFORMATION
  Report Type: Spontaneous
  Country: US (occurrence: US)
  Receive Date: 20170907
  Receipt Date: 20170907
  Transmission Date: 20171128
  Serious: No
  Sender: FDA-Public Use
  Company Number: US-009507513-1709USA003185

PATIENT
  Age: 25 Year
  Sex: Female

DRUGS (2)
  1. NEXPLANON [Suspect]
     Active Substance: ETONOGESTREL
     Indication: CONTRACEPTION
     Dosage: 1 ROD EVERY 3 YEARS
     Route: 059
     Dates: start: 201609
  2. ADVIL [Concomitant]
     Active Substance: IBUPROFEN

REACTIONS (7)
  - Menstruation irregular [Unknown]
  - Weight increased [Unknown]
  - Nausea [Unknown]
  - Parosmia [Unknown]
  - Vomiting [Unknown]
  - Headache [Unknown]
  - Breast feeding [Unknown]

NARRATIVE: CASE EVENT DATE: 201609
